FAERS Safety Report 8503286-7 (Version None)
Quarter: 2012Q2

REPORT INFORMATION
  Report Type: 
  Country: None (occurrence: None)
  Receive Date: 20120405
  Receipt Date: 20100602
  Transmission Date: 20120825
  Serious: Yes (Disabling)
  Sender: FDA-Public Use
  Company Number: PHHY2010US24034

PATIENT
  Age: 82 Year
  Sex: Female

DRUGS (1)
  1. RECLAST [Suspect]
     Dosage: INTRAVENOUS
     Route: 042
     Dates: start: 20100316

REACTIONS (7)
  - PAIN IN EXTREMITY [None]
  - NAUSEA [None]
  - BACK PAIN [None]
  - MALAISE [None]
  - ARTHRALGIA [None]
  - DIARRHOEA [None]
  - VOMITING [None]
